FAERS Safety Report 12441636 (Version 1)
Quarter: 2016Q2

REPORT INFORMATION
  Report Type: Spontaneous
  Country: US (occurrence: None)
  Receive Date: 20160606
  Receipt Date: 20160606
  Transmission Date: 20160815
  Serious: Yes (Other)
  Sender: FDA-Public Use
  Company Number: None

PATIENT
  Age: 37 Year
  Sex: Male

DRUGS (1)
  1. XOLAIR [Suspect]
     Active Substance: OMALIZUMAB
     Indication: ASTHMA
     Dosage: 300MG, Q4WKS, SQ
     Route: 058
     Dates: start: 20160305, end: 20160601

REACTIONS (2)
  - Glossodynia [None]
  - Dry throat [None]

NARRATIVE: CASE EVENT DATE: 20160601
